FAERS Safety Report 4763299-8 (Version None)
Quarter: 2005Q3

REPORT INFORMATION
  Report Type: 
  Country: None (occurrence: None)
  Receive Date: 20050901
  Receipt Date: 20050308
  Transmission Date: 20060218
  Serious: Yes (Other)
  Sender: FDA-Public Use
  Company Number: 200510287BBE

PATIENT
  Sex: Male

DRUGS (12)
  1. KOATE [Suspect]
     Indication: FACTOR VIII DEFICIENCY
     Dates: start: 19880101, end: 19900101
  2. KONYNE [Suspect]
  3. ANTIHEMOPHILIC FACTOR (HUMAN) [Suspect]
  4. FACTOR IX COMPLEX [Suspect]
  5. ANTIHEMOPHILIC FACTOR (HUMAN) [Suspect]
  6. FACTOR IX COMPLEX [Suspect]
  7. ANTIHEMOPHILIC FACTOR (HUMAN) [Suspect]
  8. FACTOR IX COMPLEX [Suspect]
  9. ANTIHEMOPHILIC FACTOR (HUMAN) [Suspect]
  10. FACTOR IX COMPLEX [Suspect]
  11. FACTOR VIII (PROFILATE) (FACTOR VIII) [Suspect]
     Dates: start: 19880101, end: 19900101
  12. FACTOR VIII (OCTANATE) (FACTOR VIII) [Suspect]
     Dates: start: 19880101, end: 19900101

REACTIONS (2)
  - HEPATITIS C [None]
  - PHARMACEUTICAL PRODUCT COMPLAINT [None]
